FAERS Safety Report 15282752 (Version 1)
Quarter: 2018Q3

REPORT INFORMATION
  Report Type: Spontaneous
  Country: FR (occurrence: FR)
  Receive Date: 20180816
  Receipt Date: 20180816
  Transmission Date: 20181010
  Serious: Yes (Other)
  Sender: FDA-Public Use
  Company Number: FR-MERCK KGAA-2053790

PATIENT
  Age: 50 Year
  Sex: Female
  Weight: 65 kg

DRUGS (1)
  1. NOVOTHYROX [Suspect]
     Active Substance: LEVOTHYROXINE SODIUM
     Indication: HYPOTHYROIDISM
     Route: 048
     Dates: start: 20170403, end: 201710

REACTIONS (8)
  - Fatigue [Recovered/Resolved]
  - Dyspnoea [Recovered/Resolved]
  - Vertigo [Recovered/Resolved]
  - Headache [Recovered/Resolved]
  - Blood thyroid stimulating hormone normal [Recovered/Resolved]
  - Pruritus [Recovered/Resolved]
  - Arthralgia [Recovered/Resolved]
  - Insomnia [Recovered/Resolved]

NARRATIVE: CASE EVENT DATE: 20170605
